FAERS Safety Report 6267704-X (Version None)
Quarter: 2009Q3

REPORT INFORMATION
  Report Type: 
  Country: None (occurrence: None)
  Receive Date: 20090714
  Receipt Date: 20090702
  Transmission Date: 20100115
  Serious: Yes (Other)
  Sender: FDA-Public Use
  Company Number: PT-PFIZER INC-2009235685

PATIENT
  Age: 74 Year

DRUGS (6)
  1. LYRICA [Suspect]
     Dosage: 50 MG, UNK
     Route: 048
     Dates: start: 20090516
  2. BUTYLSCOPOLAMIN [Concomitant]
  3. LORAZEPAM [Concomitant]
     Dosage: UNK
     Route: 048
     Dates: start: 19900101
  4. PRAVASTATIN SODIUM [Concomitant]
     Dosage: UNK
     Route: 048
     Dates: start: 20060101
  5. FLUPIRTINE MALEATE [Concomitant]
     Dosage: UNK MG, UNK
     Route: 048
     Dates: start: 20090516
  6. METAMIZOLE MAGNESIUM [Concomitant]
     Route: 048

REACTIONS (1)
  - ENURESIS [None]
